FAERS Safety Report 15270728 (Version 2)
Quarter: 2018Q4

REPORT INFORMATION
  Report Type: Spontaneous
  Country: US (occurrence: US)
  Receive Date: 20180813
  Receipt Date: 20181206
  Transmission Date: 20190204
  Serious: No
  Sender: FDA-Public Use
  Company Number: US-SA-2018SA217803

PATIENT
  Sex: Male

DRUGS (2)
  1. DULCOLAX NOS [Suspect]
     Active Substance: BISACODYL OR DOCUSATE SODIUM
     Dosage: UNK
  2. DULCOLAX NOS [Suspect]
     Active Substance: BISACODYL OR DOCUSATE SODIUM
     Dosage: UNK DF

REACTIONS (6)
  - Sleep disorder [Unknown]
  - Malaise [Unknown]
  - Diarrhoea [Unknown]
  - Faeces discoloured [Unknown]
  - Asthenia [Unknown]
  - Bowel movement irregularity [Unknown]
